FAERS Safety Report 9392833 (Version 3)
Quarter: 2017Q3

REPORT INFORMATION
  Report Type: Report from Study
  Country: JP (occurrence: JP)
  Receive Date: 20130710
  Receipt Date: 20170913
  Transmission Date: 20171128
  Serious: Yes (Death, Other)
  Sender: FDA-Public Use
  Company Number: PHHY2010JP73223

PATIENT
  Age: 70 Year
  Sex: Male

DRUGS (8)
  1. OXYCONTIN [Concomitant]
     Active Substance: OXYCODONE HYDROCHLORIDE
     Indication: RENAL CELL CARCINOMA
     Dosage: 10 MG, QD
     Route: 048
     Dates: start: 20100906, end: 20100930
  2. DUROTEP JANSSEN [Concomitant]
     Active Substance: FENTANYL
     Indication: RENAL CELL CARCINOMA
     Dosage: 0.7 MG, QD
     Route: 065
     Dates: start: 20100930, end: 20101008
  3. GASLON [Concomitant]
     Active Substance: IRSOGLADINE MALEATE
     Indication: PRODUCT USED FOR UNKNOWN INDICATION
     Dosage: 4 MG, QD
     Route: 048
     Dates: start: 20100910, end: 20100921
  4. TAKEPRON [Concomitant]
     Active Substance: LANSOPRAZOLE
     Indication: PRODUCT USED FOR UNKNOWN INDICATION
     Dosage: 15 MG, QD
     Route: 048
     Dates: start: 20100910, end: 20100921
  5. AFINITOR [Suspect]
     Active Substance: EVEROLIMUS
     Dosage: 5 MG, QD
     Route: 048
     Dates: start: 20100930, end: 20101008
  6. OMEGACIN [Concomitant]
     Active Substance: BIAPENEM
     Indication: RENAL CELL CARCINOMA
     Dosage: 0.3 MG, QD
     Route: 041
     Dates: start: 20101005, end: 20101008
  7. AFINITOR [Suspect]
     Active Substance: EVEROLIMUS
     Indication: RENAL CELL CARCINOMA
     Dosage: 10 MG, QD
     Route: 048
     Dates: start: 20100906, end: 20100918
  8. DEPAKENE [Concomitant]
     Active Substance: VALPROIC ACID
     Indication: RENAL CELL CARCINOMA
     Dosage: 400 MG, QD
     Route: 048
     Dates: start: 20100910, end: 20100920

REACTIONS (10)
  - Neutrophil count decreased [Recovered/Resolved]
  - Platelet count decreased [Unknown]
  - Stomatitis [Recovering/Resolving]
  - White blood cell count decreased [Recovered/Resolved]
  - Malignant neoplasm progression [Fatal]
  - Anaemia [Not Recovered/Not Resolved]
  - Renal cell carcinoma [Fatal]
  - Thrombocytopenia [Unknown]
  - Blood alkaline phosphatase increased [Not Recovered/Not Resolved]
  - C-reactive protein increased [Not Recovered/Not Resolved]

NARRATIVE: CASE EVENT DATE: 20100916
